FAERS Safety Report 24285335 (Version 1)
Quarter: 2024Q3

REPORT INFORMATION
  Report Type: Spontaneous
  Country: US (occurrence: None)
  Receive Date: 20240902
  Receipt Date: 20240902
  Transmission Date: 20241016
  Serious: Yes (Hospitalization)
  Sender: Public
  Company Number: None

PATIENT
  Age: 79 Year
  Sex: Male

DRUGS (5)
  1. BENEFIX [Suspect]
     Active Substance: COAGULATION FACTOR IX RECOMBINANT HUMAN\ISOPROPYL ALCOHOL
     Indication: Factor IX deficiency
     Dosage: 7100 UNITS AS NEEDED INTRAENOUS
     Route: 042
     Dates: start: 202206
  2. BENEFIX [Suspect]
     Active Substance: COAGULATION FACTOR IX RECOMBINANT HUMAN\ISOPROPYL ALCOHOL
     Indication: Factor X deficiency
     Dosage: 7100 UNITS AS NEEDED INTRAENOUS
     Route: 042
     Dates: start: 202206
  3. NORMAL SALINE FLUSH [Concomitant]
  4. HEPARIN L/L FLUSH [Concomitant]
  5. IXINTY [Concomitant]

REACTIONS (1)
  - Cerebral haemorrhage [None]

NARRATIVE: CASE EVENT DATE: 20240802
